FAERS Safety Report 16517633 (Version 1)
Quarter: 2019Q3

REPORT INFORMATION
  Report Type: Spontaneous
  Country: US (occurrence: US)
  Receive Date: 20190702
  Receipt Date: 20190702
  Transmission Date: 20191004
  Serious: Yes (Other)
  Sender: FDA-Public Use
  Company Number: None

PATIENT
  Age: 27 Year
  Weight: 87 kg

DRUGS (1)
  1. SUCCINYLCHOLINE [Suspect]
     Active Substance: SUCCINYLCHOLINE
     Route: 040
     Dates: start: 20190702, end: 20190702

REACTIONS (2)
  - Obstructive airways disorder [None]
  - Drug ineffective [None]

NARRATIVE: CASE EVENT DATE: 20190702
